FAERS Safety Report 9156568 (Version 1)
Quarter: 2013Q1

REPORT INFORMATION
  Report Type: Spontaneous
  Country: US (occurrence: None)
  Receive Date: 20130308
  Receipt Date: 20130308
  Transmission Date: 20140127
  Serious: Yes (Life-Threatening, Hospitalization)
  Sender: FDA-Public Use
  Company Number: None

PATIENT
  Sex: Male
  Weight: 65 kg

DRUGS (6)
  1. BENLYSTA [Suspect]
     Indication: SYSTEMIC LUPUS ERYTHEMATOSUS
     Route: 041
     Dates: start: 20121016, end: 20121016
  2. HYDROXYCHLOROQUINE [Concomitant]
  3. VITAMINE D3 [Concomitant]
  4. CETIRIZINE [Concomitant]
  5. LUTEIN [Concomitant]
  6. PREDNISONE [Concomitant]

REACTIONS (6)
  - Erythema [None]
  - Throat tightness [None]
  - Hypotension [None]
  - Dysphagia [None]
  - Dyspnoea [None]
  - Infusion related reaction [None]
